FAERS Safety Report 12367085 (Version 1)
Quarter: 2016Q2

REPORT INFORMATION
  Report Type: Spontaneous
  Country: US (occurrence: US)
  Receive Date: 20160513
  Receipt Date: 20160513
  Transmission Date: 20160815
  Serious: No
  Sender: FDA-Public Use
  Company Number: US-BAYER-2016-089472

PATIENT

DRUGS (1)
  1. MENSTRIDOL [Suspect]
     Active Substance: NAPROXEN SODIUM

REACTIONS (4)
  - Drug ineffective [None]
  - Premenstrual dysphoric disorder [None]
  - Premenstrual syndrome [None]
  - Therapeutic response unexpected [None]
